FAERS Safety Report 19191691 (Version 2)
Quarter: 2021Q4

REPORT INFORMATION
  Report Type: Report from Study
  Country: PL (occurrence: PL)
  Receive Date: 20210429
  Receipt Date: 20211004
  Transmission Date: 20220303
  Serious: Yes (Other)
  Sender: FDA-Public Use
  Company Number: PL-SUN PHARMACEUTICAL INDUSTRIES LTD-2021RR-293660

PATIENT
  Age: 66 Year
  Sex: Female

DRUGS (1)
  1. RISPERIDONE [Suspect]
     Active Substance: RISPERIDONE
     Indication: Delusion of parasitosis
     Dosage: 2 MILLIGRAM, DAILY
     Route: 065

REACTIONS (1)
  - Therapeutic product effect incomplete [Unknown]
